FAERS Safety Report 25962380 (Version 1)
Quarter: 2025Q4

REPORT INFORMATION
  Report Type: Spontaneous
  Country: CN (occurrence: CN)
  Receive Date: 20251027
  Receipt Date: 20251027
  Transmission Date: 20260118
  Serious: Yes (Hospitalization)
  Sender: DAIICHI
  Company Number: CN-DSJP-DS-2025-171505-CN

PATIENT
  Age: 51 Year
  Sex: Male
  Weight: 67 kg

DRUGS (2)
  1. TRASTUZUMAB DERUXTECAN [Suspect]
     Active Substance: TRASTUZUMAB DERUXTECAN
     Indication: Tonsil cancer
     Dosage: 200 MG, QD
     Route: 041
     Dates: start: 20251009, end: 20251009
  2. SODIUM CHLORIDE [Concomitant]
     Active Substance: SODIUM CHLORIDE
     Indication: Vehicle solution use
     Dosage: 100 ML, QD
     Route: 041
     Dates: start: 20251009, end: 20251009

REACTIONS (1)
  - Dyspnoea [Recovering/Resolving]

NARRATIVE: CASE EVENT DATE: 20251010
